FAERS Safety Report 22229784 (Version 1)
Quarter: 2023Q2

REPORT INFORMATION
  Report Type: Report from Study
  Country: US (occurrence: US)
  Receive Date: 20230419
  Receipt Date: 20230419
  Transmission Date: 20230722
  Serious: Yes (Other)
  Sender: FDA-Public Use
  Company Number: US-PFIZER INC-PV202300069908

PATIENT

DRUGS (1)
  1. GEMCITABINE HYDROCHLORIDE [Suspect]
     Active Substance: GEMCITABINE HYDROCHLORIDE
     Indication: Bladder cancer
     Dosage: UNK UNK, CYCLIC (DAY 0, DAY 21, DAY 42, DAY 63, DAY 84, DAY 180, 9 AND 12 MONTHS)

REACTIONS (2)
  - Urosepsis [Unknown]
  - Acute kidney injury [Unknown]
